FAERS Safety Report 10155379 (Version 2)
Quarter: 2014Q2

REPORT INFORMATION
  Report Type: Spontaneous
  Country: FR (occurrence: FR)
  Receive Date: 20140506
  Receipt Date: 20140513
  Transmission Date: 20141212
  Serious: Yes (Hospitalization)
  Sender: FDA-Public Use
  Company Number: FR-ASTRAZENECA-2014SE29282

PATIENT
  Age: 24648 Day
  Sex: Female

DRUGS (15)
  1. DIPRIVAN [Suspect]
     Indication: GENERAL ANAESTHESIA
     Route: 042
     Dates: start: 20140318, end: 20140318
  2. INEXIUM [Suspect]
     Indication: PREMEDICATION
     Route: 048
     Dates: start: 20140317, end: 20140317
  3. XYLOCAINE [Suspect]
     Indication: GENERAL ANAESTHESIA
     Route: 042
     Dates: start: 20140318, end: 20140318
  4. SUFENTA [Suspect]
     Indication: GENERAL ANAESTHESIA
     Route: 042
     Dates: start: 20140318, end: 20140318
  5. TRACRIUM [Suspect]
     Indication: GENERAL ANAESTHESIA
     Route: 042
     Dates: start: 20140318, end: 20140318
  6. DROLEPTAN [Suspect]
     Indication: GENERAL ANAESTHESIA
     Dates: start: 20140318, end: 20140318
  7. DEXAMETHASONE [Suspect]
     Indication: GENERAL ANAESTHESIA
     Route: 042
     Dates: start: 20140318, end: 20140318
  8. AUGMENTIN [Suspect]
     Indication: PROPHYLAXIS
     Dates: start: 20140317, end: 20140318
  9. ATARAX [Suspect]
     Indication: PREMEDICATION
     Route: 048
     Dates: start: 20140317, end: 20140317
  10. ACUPAN [Suspect]
     Indication: GENERAL ANAESTHESIA
     Route: 042
     Dates: start: 20140318, end: 20140318
  11. SEVOFLURANE BAXTER [Suspect]
     Indication: GENERAL ANAESTHESIA
     Dates: start: 20140318, end: 20140318
  12. TEMESTA [Concomitant]
     Route: 048
  13. TAHOR [Concomitant]
     Route: 048
  14. SYMBICORT [Concomitant]
     Route: 055
  15. KENZEN [Concomitant]
     Route: 048

REACTIONS (2)
  - Renal failure acute [Recovering/Resolving]
  - Oliguria [Recovered/Resolved]
